FAERS Safety Report 7175298-X (Version None)
Quarter: 2010Q4

REPORT INFORMATION
  Report Type: 
  Country: None (occurrence: None)
  Receive Date: 20101220
  Receipt Date: 20100305
  Transmission Date: 20110411
  Serious: No
  Sender: FDA-Public Use
  Company Number: US-AMGEN-TCS397952

PATIENT

DRUGS (2)
  1. ENBREL [Suspect]
     Indication: RHEUMATOID ARTHRITIS
     Dosage: 25 MG, 2 TIMES/WK
     Route: 058
     Dates: start: 20080615
  2. SULFASALAZINE [Concomitant]
     Dosage: 500 MG, UNK
     Route: 048

REACTIONS (2)
  - INFECTION [None]
  - UPPER RESPIRATORY TRACT INFECTION [None]
